FAERS Safety Report 16614790 (Version 1)
Quarter: 2019Q3

REPORT INFORMATION
  Report Type: Spontaneous
  Country: EG (occurrence: EG)
  Receive Date: 20190723
  Receipt Date: 20190723
  Transmission Date: 20191004
  Serious: Yes (Hospitalization, Other)
  Sender: FDA-Public Use
  Company Number: EG-FRESENIUS KABI-FK201908129

PATIENT
  Age: 15 Month
  Sex: Female
  Weight: 10 kg

DRUGS (3)
  1. NO DRUG NAME [Concomitant]
     Indication: VOMITING
     Route: 048
  2. ONDANSETRON (MANUFACTURER UNKNOWN) [Suspect]
     Active Substance: ONDANSETRON
     Indication: VOMITING
     Dosage: 3 AMPOULES ONCE PER DAY WHERE THE FIRST AMPOULE ADMINISTERED INTRAMUSCULARLY EVERY 12 HOURS
     Route: 030
  3. ONDANSETRON (MANUFACTURER UNKNOWN) [Suspect]
     Active Substance: ONDANSETRON
     Dosage: ON THE SECOND AND THIRD DAY
     Route: 042

REACTIONS (1)
  - Seizure [Recovered/Resolved]
